FAERS Safety Report 14871955 (Version 1)
Quarter: 2018Q2

REPORT INFORMATION
  Report Type: Spontaneous
  Country: CN (occurrence: CN)
  Receive Date: 20180509
  Receipt Date: 20180509
  Transmission Date: 20180711
  Serious: Yes (Hospitalization)
  Sender: FDA-Public Use
  Company Number: CN-ELI_LILLY_AND_COMPANY-CN201805000972

PATIENT
  Age: 59 Year
  Sex: Male
  Weight: 72.5 kg

DRUGS (5)
  1. INSULIN HUMAN [Suspect]
     Active Substance: INSULIN HUMAN
     Indication: DIABETES MELLITUS
     Dosage: 22 U, EACH MORNING
     Route: 058
     Dates: start: 2006, end: 201707
  2. METFORMIN [Concomitant]
     Active Substance: METFORMIN HYDROCHLORIDE
     Indication: DIABETES MELLITUS
     Dosage: 1 DF, DAILY
     Route: 048
  3. INSULIN HUMAN [Suspect]
     Active Substance: INSULIN HUMAN
     Dosage: 22 U, AT NIGHT
     Route: 058
  4. INSULIN HUMAN [Suspect]
     Active Substance: INSULIN HUMAN
     Dosage: 22 U, EACH MORNING
     Route: 058
  5. INSULIN HUMAN [Suspect]
     Active Substance: INSULIN HUMAN
     Dosage: 22 U, AT NIGHT
     Route: 058
     Dates: start: 2006, end: 201707

REACTIONS (6)
  - Angina pectoris [Unknown]
  - Dizziness [Unknown]
  - Dry mouth [Unknown]
  - Cardiac discomfort [Unknown]
  - Visual impairment [Unknown]
  - Palpitations [Unknown]

NARRATIVE: CASE EVENT DATE: 2015
